FAERS Safety Report 5495483-2 (Version None)
Quarter: 2007Q4

REPORT INFORMATION
  Report Type: 
  Country: None (occurrence: None)
  Receive Date: 20071023
  Receipt Date: 20071015
  Transmission Date: 20080405
  Serious: Yes (Life-Threatening, Hospitalization, Other)
  Sender: FDA-Public Use
  Company Number: 2007S1008880

PATIENT
  Age: 77 Year
  Sex: Female
  Weight: 71.2147 kg

DRUGS (17)
  1. CLOZAPINE [Suspect]
     Indication: DELUSION
     Dosage: 12.5 MG;DAILY;ORAL : DAILY;ORAL : 50 MG;DAILY;ORAL
     Route: 048
     Dates: end: 20070919
  2. CLOZAPINE [Suspect]
     Indication: PARANOIA
     Dosage: 12.5 MG;DAILY;ORAL : DAILY;ORAL : 50 MG;DAILY;ORAL
     Route: 048
     Dates: end: 20070919
  3. CLOZAPINE [Suspect]
     Indication: PSYCHOTIC DISORDER
     Dosage: 12.5 MG;DAILY;ORAL : DAILY;ORAL : 50 MG;DAILY;ORAL
     Route: 048
     Dates: end: 20070919
  4. CLOZAPINE [Suspect]
     Indication: DELUSION
     Dosage: 12.5 MG;DAILY;ORAL : DAILY;ORAL : 50 MG;DAILY;ORAL
     Route: 048
     Dates: start: 20070827
  5. CLOZAPINE [Suspect]
     Indication: PARANOIA
     Dosage: 12.5 MG;DAILY;ORAL : DAILY;ORAL : 50 MG;DAILY;ORAL
     Route: 048
     Dates: start: 20070827
  6. CLOZAPINE [Suspect]
     Indication: PSYCHOTIC DISORDER
     Dosage: 12.5 MG;DAILY;ORAL : DAILY;ORAL : 50 MG;DAILY;ORAL
     Route: 048
     Dates: start: 20070827
  7. CLOZAPINE [Suspect]
     Indication: DELUSION
     Dosage: 100 MG;DAILY;ORAL
     Route: 048
     Dates: end: 20070919
  8. CLOZAPINE [Suspect]
     Indication: PARANOIA
     Dosage: 100 MG;DAILY;ORAL
     Route: 048
     Dates: end: 20070919
  9. CLOZAPINE [Suspect]
     Indication: PSYCHOTIC DISORDER
     Dosage: 100 MG;DAILY;ORAL
     Route: 048
     Dates: end: 20070919
  10. EFFEXOR XR [Concomitant]
  11. METOPROLOL [Concomitant]
  12. COLACE [Concomitant]
  13. BENADRYL [Concomitant]
  14. AMITIZA [Concomitant]
  15. TRILAFON [Concomitant]
  16. ASPIRIN [Concomitant]
  17. LEVAQUIN [Concomitant]

REACTIONS (4)
  - DEEP VEIN THROMBOSIS [None]
  - DEPRESSED LEVEL OF CONSCIOUSNESS [None]
  - LETHARGY [None]
  - PULMONARY EMBOLISM [None]
